FAERS Safety Report 15798591 (Version 1)
Quarter: 2019Q1

REPORT INFORMATION
  Report Type: Spontaneous
  Country: US (occurrence: US)
  Receive Date: 20190108
  Receipt Date: 20190108
  Transmission Date: 20190417
  Serious: No
  Sender: FDA-Public Use
  Company Number: None

PATIENT
  Age: 75 Year
  Sex: Female

DRUGS (1)
  1. BUMETANIDE, 2 MG [Suspect]
     Active Substance: BUMETANIDE
     Route: 048

REACTIONS (3)
  - Joint swelling [None]
  - Arthralgia [None]
  - Micturition frequency decreased [None]

NARRATIVE: CASE EVENT DATE: 20190103
